FAERS Safety Report 9008579 (Version 1)
Quarter: 2013Q1

REPORT INFORMATION
  Report Type: Spontaneous
  Country: US (occurrence: US)
  Receive Date: 20130111
  Receipt Date: 20130111
  Transmission Date: 20140127
  Serious: Yes (Death)
  Sender: FDA-Public Use
  Company Number: US-PFIZER INC-2013007152

PATIENT
  Age: 37 Year
  Sex: Male

DRUGS (3)
  1. FENTANYL [Suspect]
     Route: 065
  2. ALPRAZOLAM [Suspect]
     Dosage: UNK
  3. ACETAMINOPHEN / HYDROCODONE [Suspect]
     Dosage: UNK

REACTIONS (1)
  - Drug abuse [Fatal]
